FAERS Safety Report 14142731 (Version 3)
Quarter: 2017Q4

REPORT INFORMATION
  Report Type: Spontaneous
  Country: GB (occurrence: GB)
  Receive Date: 20171030
  Receipt Date: 20171220
  Transmission Date: 20180321
  Serious: Yes (Death, Other)
  Sender: FDA-Public Use
  Company Number: GB-PFIZER INC-2017462164

PATIENT
  Age: 28 Year
  Sex: Male

DRUGS (6)
  1. PHENAZEPAM [Suspect]
     Active Substance: PHENAZEPAM
     Dosage: UNK
  2. CANNABIS [Suspect]
     Active Substance: CANNABIS SATIVA SUBSP. INDICA TOP
     Dosage: UNK
  3. HEROIN [Suspect]
     Active Substance: DIAMORPHINE
     Dosage: UNK (INJECTED AND SMOKED)
  4. GABAPENTIN. [Suspect]
     Active Substance: GABAPENTIN
     Dosage: UNK
  5. BUPRENORPHINE. [Suspect]
     Active Substance: BUPRENORPHINE
     Dosage: UNK
  6. VALIUM [Suspect]
     Active Substance: DIAZEPAM
     Dosage: UNK (^HAD TAKEN 20 STREET VALIUM^)

REACTIONS (9)
  - Incoherent [Unknown]
  - Gait disturbance [Unknown]
  - Memory impairment [Unknown]
  - Pneumonia aspiration [Unknown]
  - Dysarthria [Unknown]
  - Disorientation [Unknown]
  - Logorrhoea [Unknown]
  - Hypokinesia [Unknown]
  - Overdose [Fatal]

NARRATIVE: CASE EVENT DATE: 201307
